FAERS Safety Report 12867091 (Version 2)
Quarter: 2016Q4

REPORT INFORMATION
  Report Type: Report from Study
  Country: US (occurrence: US)
  Receive Date: 20161020
  Receipt Date: 20161129
  Transmission Date: 20170207
  Serious: Yes (Hospitalization)
  Sender: FDA-Public Use
  Company Number: US-GILEAD-2016-0239146

PATIENT
  Age: 55 Year
  Sex: Male
  Weight: 102.5 kg

DRUGS (2)
  1. REMODULIN [Suspect]
     Active Substance: TREPROSTINIL
     Indication: PULMONARY ARTERIAL HYPERTENSION
     Dosage: 0.060 UG/KG, CONTINUING
     Route: 042
     Dates: start: 20151223
  2. AMBRISENTAN [Suspect]
     Active Substance: AMBRISENTAN
     Indication: PULMONARY ARTERIAL HYPERTENSION
     Dosage: 10 MG, QD
     Route: 065
     Dates: start: 20151228

REACTIONS (4)
  - Diarrhoea [Unknown]
  - Rash [Unknown]
  - Vomiting projectile [Unknown]
  - Nausea [Unknown]

NARRATIVE: CASE EVENT DATE: 201610
